FAERS Safety Report 9357699 (Version 5)
Quarter: 2013Q3

REPORT INFORMATION
  Report Type: Report from Study
  Country: CA (occurrence: CA)
  Receive Date: 20130620
  Receipt Date: 20130903
  Transmission Date: 20140515
  Serious: Yes (Hospitalization, Other)
  Sender: FDA-Public Use
  Company Number: CA-SANOFI-AVENTIS-2013SA060843

PATIENT
  Age: 81 Year
  Sex: Male
  Weight: 91.4 kg

DRUGS (13)
  1. CABAZITAXEL [Suspect]
     Indication: PROSTATE CANCER METASTATIC
     Route: 042
     Dates: start: 20130117, end: 20130117
  2. CABAZITAXEL [Suspect]
     Indication: PROSTATE CANCER METASTATIC
     Route: 042
     Dates: start: 20130523, end: 20130523
  3. PREDNISONE [Suspect]
     Indication: PROSTATE CANCER METASTATIC
     Route: 048
     Dates: start: 20130117, end: 20130608
  4. SYNTHROID [Concomitant]
     Route: 048
     Dates: start: 2010
  5. XALATAN [Concomitant]
     Route: 047
     Dates: start: 2009
  6. ATIVAN [Concomitant]
     Route: 048
     Dates: start: 2007
  7. IMODIUM [Concomitant]
     Route: 048
     Dates: start: 20130124
  8. GLUCOPHAGE [Concomitant]
     Route: 048
     Dates: start: 201301
  9. PANTOPRAZOLE [Concomitant]
     Route: 048
     Dates: start: 20130117
  10. CALCITE D [Concomitant]
     Route: 048
     Dates: start: 20130411
  11. LANOXIN [Concomitant]
     Route: 048
     Dates: start: 20130603, end: 20130608
  12. METOPROLOL [Concomitant]
     Route: 048
     Dates: start: 20130418, end: 20130603
  13. PREDNISONE [Concomitant]
     Route: 048
     Dates: start: 20130117, end: 20130608

REACTIONS (1)
  - Acute myocardial infarction [Recovered/Resolved]
